FAERS Safety Report 24723866 (Version 1)
Quarter: 2024Q4

REPORT INFORMATION
  Report Type: Spontaneous
  Country: ES (occurrence: ES)
  Receive Date: 20241211
  Receipt Date: 20241211
  Transmission Date: 20250114
  Serious: Yes (Life-Threatening, Hospitalization)
  Sender: ELI LILLY AND COMPANY
  Company Number: None

PATIENT
  Sex: Female
  Weight: 82 kg

DRUGS (3)
  1. MOUNJARO [Suspect]
     Active Substance: TIRZEPATIDE
     Indication: Weight control
     Dosage: 7.5 MG, WEEKLY (1/W)
     Route: 058
     Dates: start: 20240814
  2. LEFLUNOMIDA NORMON [Concomitant]
     Indication: Myofascial pain syndrome
     Dosage: 10 MG, DAILY
     Dates: start: 20240205
  3. BILASTINE [Concomitant]
     Active Substance: BILASTINE
     Indication: Bronchitis
     Dosage: 20 MG
     Dates: start: 202302

REACTIONS (1)
  - Coronary artery dissection [Recovered/Resolved with Sequelae]

NARRATIVE: CASE EVENT DATE: 20240924
